FAERS Safety Report 6035604-6 (Version None)
Quarter: 2009Q1

REPORT INFORMATION
  Report Type: 
  Country: None (occurrence: None)
  Receive Date: 20090113
  Receipt Date: 20090102
  Transmission Date: 20090719
  Serious: Yes (Other)
  Sender: FDA-Public Use
  Company Number: PHHY2008DE27087

PATIENT
  Sex: Male
  Weight: 58 kg

DRUGS (1)
  1. SALAGEN [Suspect]
     Indication: SJOGREN'S SYNDROME
     Dosage: UNK
     Route: 048

REACTIONS (1)
  - TOOTH LOSS [None]
